FAERS Safety Report 5380449-3 (Version None)
Quarter: 2007Q3

REPORT INFORMATION
  Report Type: 
  Country: None (occurrence: None)
  Receive Date: 20070706
  Receipt Date: 20070530
  Transmission Date: 20080115
  Serious: No
  Sender: FDA-Public Use
  Company Number: A0653532A

PATIENT
  Age: 53 Year
  Sex: Female

DRUGS (4)
  1. TYKERB [Suspect]
     Indication: BREAST CANCER
     Dosage: 1250MG PER DAY
     Route: 048
     Dates: start: 20070501, end: 20070501
  2. TERBINAFINE [Concomitant]
  3. COUMADIN [Concomitant]
  4. AREDIA [Concomitant]

REACTIONS (2)
  - ASTHENIA [None]
  - FATIGUE [None]
